FAERS Safety Report 7732134-8 (Version None)
Quarter: 2011Q3

REPORT INFORMATION
  Report Type: 
  Country: None (occurrence: None)
  Receive Date: 20110906
  Receipt Date: 20110810
  Transmission Date: 20111222
  Serious: No
  Sender: FDA-Public Use
  Company Number: US-AMGEN-USASP2011041106

PATIENT
  Age: 59 Year
  Sex: Female

DRUGS (11)
  1. SELENIUM [Concomitant]
  2. CYMBALTA [Concomitant]
     Dosage: UNK
  3. MAGNESIUM [Concomitant]
  4. PROLIA [Suspect]
     Indication: OSTEOPOROSIS POSTMENOPAUSAL
     Dosage: 60 MG, Q6MO
     Dates: start: 20110101
  5. AMPHETAMINE MIXED SALTS [Concomitant]
  6. FISH OIL [Concomitant]
  7. COQ10 [Concomitant]
  8. CALCIUM CARBONATE [Concomitant]
  9. VITAMIN D [Concomitant]
  10. CLARINEX                           /01202601/ [Concomitant]
  11. MULTIVITAMIN                       /00097801/ [Concomitant]

REACTIONS (3)
  - MALAISE [None]
  - NAUSEA [None]
  - HYPERHIDROSIS [None]
